FAERS Safety Report 24963442 (Version 2)
Quarter: 2025Q1

REPORT INFORMATION
  Report Type: Spontaneous
  Country: CA (occurrence: CA)
  Receive Date: 20250213
  Receipt Date: 20250312
  Transmission Date: 20250409
  Serious: Yes (Other)
  Sender: TEVA
  Company Number: CA-TEVA-VS-3296405

PATIENT
  Age: 77 Year
  Sex: Male

DRUGS (3)
  1. PREDNISONE [Suspect]
     Active Substance: PREDNISONE
     Indication: Haematochezia
     Route: 065
     Dates: start: 20241223
  2. PREDNISONE [Suspect]
     Active Substance: PREDNISONE
     Indication: Haematochezia
     Route: 065
     Dates: start: 20250117
  3. PREDNISONE [Suspect]
     Active Substance: PREDNISONE
     Indication: Haematochezia
     Route: 065
     Dates: start: 20250217

REACTIONS (3)
  - Haematochezia [Recovering/Resolving]
  - Drug ineffective [Unknown]
  - Discomfort [Unknown]

NARRATIVE: CASE EVENT DATE: 20250101
